FAERS Safety Report 15053298 (Version 1)
Quarter: 2018Q2

REPORT INFORMATION
  Report Type: Spontaneous
  Country: US (occurrence: US)
  Receive Date: 20180622
  Receipt Date: 20180622
  Transmission Date: 20180711
  Serious: No
  Sender: FDA-Public Use
  Company Number: US-INCYTE CORPORATION-2018IN005971

PATIENT

DRUGS (2)
  1. JAKAFI [Suspect]
     Active Substance: RUXOLITINIB
     Indication: ACUTE MYELOID LEUKAEMIA
     Dosage: 10 MG, BID
     Route: 048
     Dates: start: 20171116
  2. JAKAFI [Suspect]
     Active Substance: RUXOLITINIB
     Dosage: 1 TABLET QD MONDAY TO THURSDAY AND 1 TABLET BID FRIDAY TO SUNDAY
     Route: 065
     Dates: start: 201806

REACTIONS (1)
  - Off label use [Unknown]
